FAERS Safety Report 6656816-4 (Version None)
Quarter: 2010Q1

REPORT INFORMATION
  Report Type: 
  Country: None (occurrence: None)
  Receive Date: 20100325
  Receipt Date: 20100312
  Transmission Date: 20100710
  Serious: Yes (Hospitalization)
  Sender: FDA-Public Use
  Company Number: US-1181151

PATIENT
  Age: 80 Year
  Sex: Female

DRUGS (1)
  1. TRIESENCE [Suspect]
     Indication: MACULAR OEDEMA
     Dosage: (40 MG 1X INTRAOCULAR)
     Route: 031
     Dates: start: 20100303, end: 20100303

REACTIONS (1)
  - SUPRAVENTRICULAR TACHYCARDIA [None]
